FAERS Safety Report 4581916-2 (Version None)
Quarter: 2005Q1

REPORT INFORMATION
  Report Type: 
  Country: None (occurrence: None)
  Receive Date: 20050214
  Receipt Date: 20040406
  Transmission Date: 20050727
  Serious: No
  Sender: FDA-Public Use
  Company Number: US-GLAXOSMITHKLINE-A0505979A

PATIENT
  Age: 44 Year
  Sex: Female

DRUGS (4)
  1. LAMICTAL [Suspect]
     Indication: BIPOLAR DISORDER
     Route: 048
     Dates: start: 20030901, end: 20030901
  2. KLONOPIN [Concomitant]
  3. PAXIL [Concomitant]
  4. GEODON [Concomitant]

REACTIONS (5)
  - AGEUSIA [None]
  - APTYALISM [None]
  - GINGIVAL BLEEDING [None]
  - HYPERSENSITIVITY [None]
  - SWOLLEN TONGUE [None]
